FAERS Safety Report 17451769 (Version 9)
Quarter: 2020Q4

REPORT INFORMATION
  Report Type: Report from Study
  Country: DE (occurrence: DE)
  Receive Date: 20200224
  Receipt Date: 20201123
  Transmission Date: 20210113
  Serious: Yes (Hospitalization)
  Sender: FDA-Public Use
  Company Number: DE-EISAI MEDICAL RESEARCH-EC-2020-070564

PATIENT
  Age: 67 Year
  Sex: Female
  Weight: 79 kg

DRUGS (19)
  1. DEKRISTOL [Concomitant]
     Active Substance: CHOLECALCIFEROL
     Dates: start: 201801
  2. HYDROCHLOROTHIAZIDE. [Concomitant]
     Active Substance: HYDROCHLOROTHIAZIDE
     Dates: start: 200001
  3. LENVATINIB [Suspect]
     Active Substance: LENVATINIB
     Indication: HEPATOCELLULAR CARCINOMA
     Dosage: BODY WEIGHT (BW) GREATER THAN OR EQUAL TO 60 KG
     Route: 048
     Dates: start: 20191105, end: 20191208
  4. LENVATINIB [Suspect]
     Active Substance: LENVATINIB
     Dosage: BODY WEIGHT (BW) GREATER THAN OR EQUAL TO 60 KG
     Route: 048
     Dates: start: 20191210, end: 20191220
  5. PEMBROLIZUMAB. [Suspect]
     Active Substance: PEMBROLIZUMAB
     Route: 042
     Dates: start: 20200107, end: 20200205
  6. PROTAPHANE [Concomitant]
     Active Substance: INSULIN HUMAN
     Dates: start: 201303
  7. MAGNESIUM [Concomitant]
     Active Substance: MAGNESIUM
     Dates: start: 20191127
  8. LENVATINIB [Suspect]
     Active Substance: LENVATINIB
     Dosage: BODY WEIGHT (BW) GREATER THAN OR EQUAL TO 60 KG; FLUCTUATED DOSAGE
     Route: 048
     Dates: start: 20200107, end: 20200308
  9. SIMVASTATIN. [Concomitant]
     Active Substance: SIMVASTATIN
     Dates: start: 201901
  10. BISOPROLOL [Concomitant]
     Active Substance: BISOPROLOL
     Dates: start: 200001
  11. TILIDIN [Concomitant]
     Active Substance: NALOXONE HYDROCHLORIDE\TILIDINE HYDROCHLORIDE
     Dates: start: 201401
  12. LENVATINIB [Suspect]
     Active Substance: LENVATINIB
     Dosage: BODY WEIGHT (BW) { 60 KG
     Route: 048
     Dates: start: 20200324
  13. NOVALGIN [Concomitant]
     Dates: start: 200001
  14. RAMIPRIL. [Concomitant]
     Active Substance: RAMIPRIL
     Dates: start: 20191127, end: 20191210
  15. LENVATINIB [Suspect]
     Active Substance: LENVATINIB
     Dosage: BODY WEIGHT (BW) { 60 KG
     Route: 048
     Dates: start: 20200309, end: 20200322
  16. PEMBROLIZUMAB. [Suspect]
     Active Substance: PEMBROLIZUMAB
     Indication: HEPATOCELLULAR CARCINOMA
     Route: 042
     Dates: start: 20191105, end: 20191105
  17. PEMBROLIZUMAB. [Suspect]
     Active Substance: PEMBROLIZUMAB
     Route: 042
     Dates: start: 20191127, end: 20191127
  18. PEMBROLIZUMAB. [Suspect]
     Active Substance: PEMBROLIZUMAB
     Route: 042
     Dates: start: 20200309, end: 20200309
  19. OMEPRAZOLE. [Concomitant]
     Active Substance: OMEPRAZOLE
     Dates: start: 200001

REACTIONS (4)
  - Hypervolaemia [Recovered/Resolved]
  - Diarrhoea [Not Recovered/Not Resolved]
  - Enterocolitis infectious [Recovered/Resolved]
  - Hyponatraemia [Recovered/Resolved]

NARRATIVE: CASE EVENT DATE: 20191211
